FAERS Safety Report 4597862-4 (Version None)
Quarter: 2005Q1

REPORT INFORMATION
  Report Type: 
  Country: None (occurrence: None)
  Receive Date: 20050301
  Receipt Date: 20050218
  Transmission Date: 20050727
  Serious: Yes (Other)
  Sender: FDA-Public Use
  Company Number: JP-2005-001320

PATIENT
  Age: 63 Year
  Sex: Male

DRUGS (1)
  1. PROSCOPE 300 (IOPROMIDE) INFUSION [Suspect]
     Indication: ANGIOGRAM CEREBRAL
     Dosage: 6 ML, 2 DOSES, INTRA-ARTERIAL
     Route: 013
     Dates: start: 20050127, end: 20050127

REACTIONS (8)
  - DYSPNOEA [None]
  - ERYTHEMA [None]
  - FLUSHING [None]
  - HYPERAEMIA [None]
  - OCULAR HYPERAEMIA [None]
  - PHARYNGEAL OEDEMA [None]
  - SNEEZING [None]
  - VOMITING [None]
